FAERS Safety Report 18668903 (Version 1)
Quarter: 2020Q4

REPORT INFORMATION
  Report Type: Spontaneous
  Country: US (occurrence: US)
  Receive Date: 20201227
  Receipt Date: 20201227
  Transmission Date: 20210114
  Serious: Yes (Other)
  Sender: FDA-Public Use
  Company Number: None

PATIENT
  Age: 44 Year
  Sex: Female
  Weight: 63 kg

DRUGS (13)
  1. AIMOVIG [Suspect]
     Active Substance: ERENUMAB-AOOE
     Indication: MIGRAINE
     Dosage: ?          QUANTITY:1 INJECTION(S);
     Route: 058
     Dates: start: 20201017, end: 20201219
  2. HYDROXICHLOROQUINE [Concomitant]
  3. ZYRTEC [Concomitant]
     Active Substance: CETIRIZINE HYDROCHLORIDE
  4. MAGNESIUM [Concomitant]
     Active Substance: MAGNESIUM
  5. ESTRODIAL [Concomitant]
     Active Substance: ESTRADIOL
  6. LEUCOVORIN. [Concomitant]
     Active Substance: LEUCOVORIN
  7. HUMIRA [Concomitant]
     Active Substance: ADALIMUMAB
  8. METHOTREXATE. [Concomitant]
     Active Substance: METHOTREXATE
  9. AMBIEN [Concomitant]
     Active Substance: ZOLPIDEM TARTRATE
  10. CALCIUM [Concomitant]
     Active Substance: CALCIUM
  11. FOLIC ACID. [Concomitant]
     Active Substance: FOLIC ACID
  12. DULOXETINE. [Concomitant]
     Active Substance: DULOXETINE
  13. VITAMIN D [Concomitant]
     Active Substance: VITAMIN D NOS

REACTIONS (5)
  - Feeling drunk [None]
  - Nausea [None]
  - Vertigo [None]
  - Drug ineffective [None]
  - Dizziness [None]

NARRATIVE: CASE EVENT DATE: 20201227
